FAERS Safety Report 14733459 (Version 2)
Quarter: 2018Q3

REPORT INFORMATION
  Report Type: Spontaneous
  Country: DK (occurrence: DK)
  Receive Date: 20180409
  Receipt Date: 20180907
  Transmission Date: 20181010
  Serious: Yes (Hospitalization)
  Sender: FDA-Public Use
  Company Number: PHHY2018DK059471

PATIENT
  Age: 25 Year
  Sex: Female
  Weight: 43 kg

DRUGS (3)
  1. VENLAFAXINE [Concomitant]
     Active Substance: VENLAFAXINE HYDROCHLORIDE
     Indication: ANXIETY
     Dosage: 150 MG, QD
     Route: 048
     Dates: start: 20140915
  2. RITALIN [Suspect]
     Active Substance: METHYLPHENIDATE HYDROCHLORIDE
     Indication: ATTENTION DEFICIT/HYPERACTIVITY DISORDER
     Dosage: DOSIS: VARIERENDE DOSIS ML. 20 MG X 2 OG 60 MG X2.
     Route: 048
     Dates: start: 20140915, end: 20161223
  3. MEDICEBRAN [Concomitant]
     Indication: ATTENTION DEFICIT/HYPERACTIVITY DISORDER
     Dosage: DOSIS: VARIERENDE DOSIS ML. 1/2 X 10 MG. X2 DGL. OG 20 MG X 1
     Route: 048
     Dates: start: 20140828, end: 20161223

REACTIONS (7)
  - Extrasystoles [Unknown]
  - Musculoskeletal discomfort [Recovered/Resolved]
  - Muscle spasms [Unknown]
  - Speech disorder [Unknown]
  - Palpitations [Unknown]
  - Dyskinesia [Unknown]
  - Mood altered [Unknown]

NARRATIVE: CASE EVENT DATE: 20150407
